FAERS Safety Report 18825848 (Version 5)
Quarter: 2021Q4

REPORT INFORMATION
  Report Type: Report from Study
  Country: US (occurrence: US)
  Receive Date: 20210202
  Receipt Date: 20211018
  Transmission Date: 20220303
  Serious: No
  Sender: FDA-Public Use
  Company Number: NVSC2021US021486

PATIENT
  Sex: Male

DRUGS (1)
  1. ZOLGENSMA [Suspect]
     Active Substance: ONASEMNOGENE ABEPARVOVEC-XIOI
     Indication: Spinal muscular atrophy
     Dosage: UNK, ONCE/SINGLE (INTO BLOODSTREAM VIA VEIN)
     Route: 042
     Dates: start: 20210122, end: 20210122

REACTIONS (6)
  - Blood glucose decreased [Unknown]
  - Gastrooesophageal reflux disease [Unknown]
  - Weight gain poor [Unknown]
  - Pyrexia [Unknown]
  - Vomiting [Unknown]
  - Hepatic enzyme increased [Unknown]
